FAERS Safety Report 18228458 (Version 1)
Quarter: 2020Q3

REPORT INFORMATION
  Report Type: Spontaneous
  Country: US (occurrence: US)
  Receive Date: 20200903
  Receipt Date: 20200903
  Transmission Date: 20201103
  Serious: Yes (Other)
  Sender: FDA-Public Use
  Company Number: US-PFIZER INC-2020342140

PATIENT
  Age: 42 Year
  Sex: Male

DRUGS (5)
  1. MEPERIDINE HCL [Suspect]
     Active Substance: MEPERIDINE HYDROCHLORIDE
     Dosage: UNK (ESCALATED TO 250?300 MG)
     Route: 042
  2. FUROSEMIDE. [Concomitant]
     Active Substance: FUROSEMIDE
     Indication: ACUTE RESPIRATORY DISTRESS SYNDROME
     Dosage: UNK
     Route: 030
  3. EPINEPHRINE. [Concomitant]
     Active Substance: EPINEPHRINE
     Indication: ACUTE RESPIRATORY DISTRESS SYNDROME
     Dosage: UNK (SINGLE)
     Route: 058
  4. MEPERIDINE HCL [Suspect]
     Active Substance: MEPERIDINE HYDROCHLORIDE
     Indication: ARTHRALGIA
     Dosage: 100 MG, (Q3H)
     Route: 042
  5. PENTAZOCINE [Concomitant]
     Active Substance: PENTAZOCINE
     Indication: PAIN
     Dosage: 50 MG, (Q4H) AS NEEDED
     Route: 048

REACTIONS (5)
  - Mental status changes [Recovering/Resolving]
  - Delusion [Recovering/Resolving]
  - Hallucination [Recovering/Resolving]
  - Drug ineffective [Unknown]
  - Psychotic disorder [Recovering/Resolving]
